FAERS Safety Report 5313484-1 (Version None)
Quarter: 2007Q2

REPORT INFORMATION
  Report Type: 
  Country: None (occurrence: None)
  Receive Date: 20070424
  Receipt Date: 20070412
  Transmission Date: 20071010
  Serious: Yes (Hospitalization, Other)
  Sender: FDA-Public Use
  Company Number: 2007-00859

PATIENT
  Age: 59 Year
  Sex: Male
  Weight: 105 kg

DRUGS (3)
  1. VELCADE [Suspect]
     Indication: PLASMACYTOMA
     Dosage: 2.77 MG, INTRAVENOUS
     Route: 042
     Dates: start: 20061121, end: 20061124
  2. PREDNISOLONE [Concomitant]
  3. DICLOFENAC (DICLOFENAC) [Concomitant]

REACTIONS (9)
  - ABASIA [None]
  - ARRHYTHMIA [None]
  - ASTHENIA [None]
  - BONE PAIN [None]
  - CONVULSION [None]
  - DEMYELINATING POLYNEUROPATHY [None]
  - DIARRHOEA [None]
  - GUILLAIN-BARRE SYNDROME [None]
  - POLYNEUROPATHY [None]
